FAERS Safety Report 7577850-6 (Version None)
Quarter: 2011Q2

REPORT INFORMATION
  Report Type: 
  Country: None (occurrence: None)
  Receive Date: 20110628
  Receipt Date: 20110616
  Transmission Date: 20111010
  Serious: Yes (Hospitalization)
  Sender: FDA-Public Use
  Company Number: PHFR2011GB03321

PATIENT
  Sex: Female
  Weight: 59 kg

DRUGS (3)
  1. CLOZAPINE [Suspect]
     Dosage: 50 MG, DAILY
     Route: 048
     Dates: start: 20080103, end: 20110501
  2. GAVISCON                                /GFR/ [Concomitant]
     Dosage: 10 MG, DAILY
     Route: 048
  3. ESCITALOPRAM [Concomitant]
     Dosage: 5 MG, DAILY
     Route: 048

REACTIONS (5)
  - BLOOD CREATINE PHOSPHOKINASE INCREASED [None]
  - MENTAL IMPAIRMENT [None]
  - HEPATIC STEATOSIS [None]
  - ALANINE AMINOTRANSFERASE INCREASED [None]
  - LIVER FUNCTION TEST ABNORMAL [None]
